FAERS Safety Report 9707467 (Version 6)
Quarter: 2014Q4

REPORT INFORMATION
  Report Type: Spontaneous
  Country: US (occurrence: US)
  Receive Date: 20131125
  Receipt Date: 20141119
  Transmission Date: 20150529
  Serious: Yes (Hospitalization, Other)
  Sender: FDA-Public Use
  Company Number: US-MERCK-1311USA009891

PATIENT
  Sex: Female
  Weight: 79.37 kg

DRUGS (3)
  1. NORVASC [Concomitant]
     Active Substance: AMLODIPINE BESYLATE
     Indication: HYPERTENSION
     Dosage: 5 MG, UNK
     Dates: start: 2009
  2. JANUVIA [Suspect]
     Active Substance: SITAGLIPTIN PHOSPHATE
     Indication: TYPE 2 DIABETES MELLITUS
     Dosage: 100 MG, QD
     Route: 048
     Dates: start: 20080212, end: 20121213
  3. LIPITOR [Concomitant]
     Active Substance: ATORVASTATIN CALCIUM
     Indication: BLOOD CHOLESTEROL INCREASED
     Dosage: 80 MG, UNK
     Dates: start: 2004

REACTIONS (16)
  - Large intestine polyp [Unknown]
  - Metastases to liver [Unknown]
  - Metastases to peritoneum [Unknown]
  - Abdominal hernia [Unknown]
  - Metastases to lung [Unknown]
  - Deep vein thrombosis [Unknown]
  - Knee arthroplasty [Unknown]
  - Tonsillectomy [Unknown]
  - Increased tendency to bruise [Unknown]
  - Hysterectomy [Unknown]
  - Back pain [Unknown]
  - Surgery [Unknown]
  - Large intestinal polypectomy [Unknown]
  - Hepatic steatosis [Unknown]
  - Pancreatic carcinoma metastatic [Unknown]
  - Neuropathy peripheral [Unknown]

NARRATIVE: CASE EVENT DATE: 2011
